FAERS Safety Report 5084371-1 (Version None)
Quarter: 2006Q3

REPORT INFORMATION
  Report Type: 
  Country: None (occurrence: None)
  Receive Date: 20060821
  Receipt Date: 20041122
  Transmission Date: 20061208
  Serious: Yes (Hospitalization, Other)
  Sender: FDA-Public Use
  Company Number: JP-AVENTIS-200413740JP

PATIENT
  Age: 35 Year
  Sex: Female
  Weight: 63.7 kg

DRUGS (5)
  1. LANTUS [Suspect]
     Indication: DIABETES MELLITUS INSULIN-DEPENDENT
     Dosage: DOSE: 25UNITS
     Route: 058
     Dates: start: 20031218, end: 20040523
  2. OPTIPEN (INSULIN PUMP) [Suspect]
  3. NOVORAPID [Concomitant]
     Indication: DIABETES MELLITUS INSULIN-DEPENDENT
     Dosage: DOSE: 10-10-10
     Route: 058
     Dates: start: 20011227
  4. PENFILL N [Concomitant]
     Indication: DIABETES MELLITUS INSULIN-DEPENDENT
     Dates: end: 20031217
  5. PENFILL N [Concomitant]
     Dates: start: 20040524

REACTIONS (2)
  - BREAST CANCER [None]
  - DIABETIC RETINOPATHY [None]
